FAERS Safety Report 15930602 (Version 1)
Quarter: 2019Q1

REPORT INFORMATION
  Report Type: Spontaneous
  Country: US (occurrence: US)
  Receive Date: 20190116
  Receipt Date: 20190116
  Transmission Date: 20190417
  Serious: No
  Sender: FDA-Public Use
  Company Number: None

PATIENT

DRUGS (1)
  1. HYDROCODONE [Suspect]
     Active Substance: HYDROCODONE
     Indication: PAIN
     Route: 048

REACTIONS (3)
  - Feeling abnormal [None]
  - Pain [None]
  - Product quality issue [None]

NARRATIVE: CASE EVENT DATE: 201812
